FAERS Safety Report 22612447 (Version 5)
Quarter: 2023Q4

REPORT INFORMATION
  Report Type: Report from Study
  Country: ES (occurrence: ES)
  Receive Date: 20230617
  Receipt Date: 20231222
  Transmission Date: 20240109
  Serious: Yes (Hospitalization, Other)
  Sender: FDA-Public Use
  Company Number: ES-TAKEDA-2023TUS059283

PATIENT
  Age: 4 Year
  Sex: Male

DRUGS (20)
  1. TEDUGLUTIDE [Suspect]
     Active Substance: TEDUGLUTIDE
     Indication: Short-bowel syndrome
     Dosage: 0.32 MILLIGRAM, QD
     Route: 042
     Dates: start: 20200513, end: 20210717
  2. TEDUGLUTIDE [Suspect]
     Active Substance: TEDUGLUTIDE
     Indication: Short-bowel syndrome
     Dosage: 0.32 MILLIGRAM, QD
     Route: 042
     Dates: start: 20200513, end: 20210717
  3. TEDUGLUTIDE [Suspect]
     Active Substance: TEDUGLUTIDE
     Indication: Short-bowel syndrome
     Dosage: 0.32 MILLIGRAM, QD
     Route: 042
     Dates: start: 20200513, end: 20210717
  4. TEDUGLUTIDE [Suspect]
     Active Substance: TEDUGLUTIDE
     Indication: Short-bowel syndrome
     Dosage: 0.32 MILLIGRAM, QD
     Route: 042
     Dates: start: 20200513, end: 20210717
  5. TEDUGLUTIDE [Suspect]
     Active Substance: TEDUGLUTIDE
     Dosage: 0.32 MILLIGRAM, QD
     Route: 042
     Dates: start: 20210721, end: 20230219
  6. TEDUGLUTIDE [Suspect]
     Active Substance: TEDUGLUTIDE
     Dosage: 0.32 MILLIGRAM, QD
     Route: 042
     Dates: start: 20210721, end: 20230219
  7. TEDUGLUTIDE [Suspect]
     Active Substance: TEDUGLUTIDE
     Dosage: 0.32 MILLIGRAM, QD
     Route: 042
     Dates: start: 20210721, end: 20230219
  8. TEDUGLUTIDE [Suspect]
     Active Substance: TEDUGLUTIDE
     Dosage: 0.32 MILLIGRAM, QD
     Route: 042
     Dates: start: 20210721, end: 20230219
  9. HEPARIN [Concomitant]
     Active Substance: HEPARIN SODIUM
     Indication: Thrombosis
     Dosage: UNK
     Route: 042
     Dates: start: 20230220, end: 20230304
  10. HIBOR [Concomitant]
     Indication: Thrombosis
     Dosage: UNK
     Route: 058
     Dates: start: 20230304
  11. AMPHOTERICIN B [Concomitant]
     Active Substance: AMPHOTERICIN B
     Indication: Trichosporon infection
     Dosage: UNK
     Route: 042
     Dates: start: 20230228, end: 20230317
  12. RITUXIMAB [Concomitant]
     Active Substance: RITUXIMAB
     Indication: Anti-HLA antibody test positive
     Dosage: UNK
     Route: 042
     Dates: start: 20230324, end: 20230331
  13. SODIUM BICARBONATE [Concomitant]
     Active Substance: SODIUM BICARBONATE
     Indication: Multivisceral transplantation
     Dosage: UNK UNK, TID
     Dates: start: 20230807
  14. MELATONIN [Concomitant]
     Active Substance: MELATONIN
     Indication: Insomnia
     Dosage: 4 GTT DROPS, QD
     Route: 048
     Dates: start: 20230807
  15. SULFAMETHOXAZOLE\TRIMETHOPRIM [Concomitant]
     Active Substance: SULFAMETHOXAZOLE\TRIMETHOPRIM
     Indication: Multivisceral transplantation
     Dosage: 5 MILLILITER, BID
     Route: 048
     Dates: start: 20230723
  16. Salvacolina [Concomitant]
     Indication: Multivisceral transplantation
     Dosage: 1 MILLIGRAM, TID
     Route: 048
     Dates: start: 20230723
  17. SIROLIMUS [Concomitant]
     Active Substance: SIROLIMUS
     Indication: Multivisceral transplantation
     Dosage: 1.3 MILLIGRAM, QD
     Route: 048
     Dates: start: 20231127
  18. Paidocort [Concomitant]
     Indication: Multivisceral transplantation
     Dosage: 4.5 MILLIGRAM, QD
     Route: 048
     Dates: start: 20231127
  19. VITAMIN D [Concomitant]
     Active Substance: VITAMIN D NOS
     Indication: Vitamin D deficiency
     Dosage: 1000 INTERNATIONAL UNIT, QD
     Route: 048
     Dates: start: 20231127
  20. URSODIOL [Concomitant]
     Active Substance: URSODIOL
     Indication: Hypertransaminasaemia
     Dosage: 100 MILLIGRAM, TID
     Route: 048
     Dates: start: 20231127

REACTIONS (2)
  - Gastroenteritis [Recovered/Resolved]
  - Intestinal obstruction [Recovered/Resolved]

NARRATIVE: CASE EVENT DATE: 20230508
